FAERS Safety Report 7213673-5 (Version None)
Quarter: 2011Q1

REPORT INFORMATION
  Report Type: 
  Country: None (occurrence: None)
  Receive Date: 20110106
  Receipt Date: 20101222
  Transmission Date: 20110831
  Serious: Yes (Other)
  Sender: FDA-Public Use
  Company Number: US-CELGENEUS-163-C5013-05090389

PATIENT
  Age: 20 Year
  Sex: Female
  Weight: 65 kg

DRUGS (9)
  1. RISPERIDONE [Concomitant]
     Route: 065
  2. LEXAPRO [Concomitant]
     Route: 065
  3. CLONOPIN [Concomitant]
     Route: 065
  4. ZOFRAN [Concomitant]
     Route: 065
  5. PROVERA [Concomitant]
     Route: 065
  6. CC-5013 [Suspect]
     Dosage: 15 MG/M2
     Route: 048
     Dates: start: 20050912, end: 20050922
  7. ETOPOSIDE [Suspect]
     Dosage: 50MG ALTERNATING 100MG
     Route: 065
     Dates: start: 20050926
  8. AMOXICILLIN [Concomitant]
     Route: 065
  9. GABAPENTIN [Concomitant]
     Route: 065

REACTIONS (5)
  - PAIN [None]
  - DECREASED APPETITE [None]
  - VOMITING [None]
  - NAUSEA [None]
  - HYPERCALCAEMIA [None]
